FAERS Safety Report 7298222-8 (Version None)
Quarter: 2011Q1

REPORT INFORMATION
  Report Type: 
  Country: None (occurrence: None)
  Receive Date: 20110217
  Receipt Date: 20101230
  Transmission Date: 20110831
  Serious: Yes (Life-Threatening, Hospitalization, Other)
  Sender: FDA-Public Use
  Company Number: US-BAYER-201016262NA

PATIENT
  Sex: Female
  Weight: 61 kg

DRUGS (5)
  1. LOVENOX [Concomitant]
  2. ADVAIR [Concomitant]
  3. PROTONIX [Concomitant]
  4. YASMIN [Suspect]
     Indication: CONTRACEPTION
     Dosage: UNK
     Route: 048
     Dates: start: 20040101, end: 20061115
  5. ALBUTEROL [Concomitant]

REACTIONS (7)
  - DYSPNOEA [None]
  - BLOOD PRESSURE DECREASED [None]
  - VENOUS THROMBOSIS [None]
  - THROMBOSIS [None]
  - PRESYNCOPE [None]
  - GASTROINTESTINAL HAEMORRHAGE [None]
  - PULMONARY EMBOLISM [None]
